FAERS Safety Report 13795921 (Version 2)
Quarter: 2017Q4

REPORT INFORMATION
  Report Type: Report from Study
  Country: BR (occurrence: BR)
  Receive Date: 20170726
  Receipt Date: 20171027
  Transmission Date: 20180320
  Serious: Yes (Hospitalization, Other)
  Sender: FDA-Public Use
  Company Number: PHHY2017BR089279

PATIENT
  Sex: Female
  Weight: 68 kg

DRUGS (5)
  1. EXJADE [Suspect]
     Active Substance: DEFERASIROX
     Indication: IRON OVERLOAD
     Dosage: 3 DF, QD
     Route: 048
     Dates: start: 2017
  2. FILGRASTIM [Concomitant]
     Active Substance: FILGRASTIM
     Indication: PRODUCT USED FOR UNKNOWN INDICATION
     Route: 065
  3. EXJADE [Suspect]
     Active Substance: DEFERASIROX
     Dosage: 4 DF, QD
     Route: 048
  4. EXJADE [Suspect]
     Active Substance: DEFERASIROX
     Dosage: 2000 MG, UNK
     Route: 048
  5. ERYTHROPOIETIN [Concomitant]
     Active Substance: ERYTHROPOIETIN
     Indication: PRODUCT USED FOR UNKNOWN INDICATION
     Route: 065

REACTIONS (17)
  - Hepatomegaly [Unknown]
  - Splenomegaly [Unknown]
  - Influenza [Recovering/Resolving]
  - Dizziness [Unknown]
  - Decreased immune responsiveness [Unknown]
  - Asthenia [Unknown]
  - Serum ferritin increased [Not Recovered/Not Resolved]
  - Cataract [Unknown]
  - Pyrexia [Unknown]
  - Condition aggravated [Not Recovered/Not Resolved]
  - Pain [Unknown]
  - Visual impairment [Unknown]
  - Vision blurred [Unknown]
  - Feeding disorder [Unknown]
  - Fatigue [Unknown]
  - Deafness [Unknown]
  - Malaise [Unknown]
